FAERS Safety Report 6326513-3 (Version None)
Quarter: 2009Q3

REPORT INFORMATION
  Report Type: 
  Country: None (occurrence: None)
  Receive Date: 20090821
  Receipt Date: 20090810
  Transmission Date: 20100115
  Serious: Yes (Other)
  Sender: FDA-Public Use
  Company Number: ADR12752009

PATIENT
  Age: 33 Year
  Sex: Female

DRUGS (12)
  1. RANITIDINE [Suspect]
     Dosage: INTRAVENOUS
     Route: 042
  2. ALFENTANIL [Concomitant]
  3. ASPIRIN [Concomitant]
  4. AZATHIOPRINE [Concomitant]
  5. DALTEPARIN SODIUM [Concomitant]
  6. IMMUNE GLOBULIN INTRAVENOUS (HUMAN) [Concomitant]
  7. ISOFLURANE [Concomitant]
  8. METOCLOPRAMIDE [Concomitant]
  9. PROTAMINE SULFATE [Concomitant]
  10. SODIUM CITRATE [Concomitant]
  11. SUCCINYLCHOLINE CHLORIDE [Concomitant]
  12. THIOPENTAL SODIUM [Concomitant]

REACTIONS (15)
  - ACTIVATED PARTIAL THROMBOPLASTIN TIME PROLONGED [None]
  - APHASIA [None]
  - BLOOD PRESSURE SYSTOLIC DECREASED [None]
  - CAESAREAN SECTION [None]
  - DRUG EXPOSURE DURING PREGNANCY [None]
  - FALL [None]
  - HAEMOGLOBIN DECREASED [None]
  - HEART RATE INCREASED [None]
  - HEMIPLEGIA [None]
  - HYPOCOAGULABLE STATE [None]
  - HYPOTONIA [None]
  - IDIOPATHIC THROMBOCYTOPENIC PURPURA [None]
  - ISCHAEMIC STROKE [None]
  - PREMATURE LABOUR [None]
  - PREMATURE RUPTURE OF MEMBRANES [None]
